FAERS Safety Report 8418164-1 (Version None)
Quarter: 2012Q2

REPORT INFORMATION
  Report Type: 
  Country: None (occurrence: None)
  Receive Date: 20120607
  Receipt Date: 20120526
  Transmission Date: 20120825
  Serious: Yes (Disabling)
  Sender: FDA-Public Use
  Company Number: US-SANOFI-AVENTIS-2012SA038364

PATIENT
  Age: 64 Year
  Sex: Female

DRUGS (4)
  1. LANTUS [Suspect]
     Indication: TYPE 2 DIABETES MELLITUS
     Dosage: 30-34 UNITS
     Route: 058
     Dates: start: 20120101
  2. SOLOSTAR [Suspect]
     Indication: TYPE 2 DIABETES MELLITUS
     Dates: start: 20120101
  3. LANTUS [Suspect]
     Dosage: DOSE:20 UNIT(S)
     Route: 058
     Dates: start: 20120101, end: 20120101
  4. HYDRALAZINE HCL [Suspect]
     Indication: BLOOD PRESSURE
     Route: 065
     Dates: start: 20120101

REACTIONS (7)
  - COUGH [None]
  - FATIGUE [None]
  - INFLUENZA [None]
  - ASTHENIA [None]
  - PULMONARY CONGESTION [None]
  - CONDITION AGGRAVATED [None]
  - TREMOR [None]
